FAERS Safety Report 12778944 (Version 4)
Quarter: 2018Q1

REPORT INFORMATION
  Report Type: Spontaneous
  Country: US (occurrence: US)
  Receive Date: 20160926
  Receipt Date: 20180126
  Transmission Date: 20180508
  Serious: Yes (Other)
  Sender: FDA-Public Use
  Company Number: US-JAZZ-2016-US-011185

PATIENT
  Sex: Male

DRUGS (33)
  1. XYREM [Suspect]
     Active Substance: SODIUM OXYBATE
     Indication: SLEEP DISORDER
     Dosage: 3 G, BID
     Route: 048
     Dates: start: 200809, end: 2008
  2. LAMICTAL [Concomitant]
     Active Substance: LAMOTRIGINE
  3. HYDROCODONE/ACETAMINOPHEN [Concomitant]
     Active Substance: ACETAMINOPHEN\HYDROCODONE
  4. XYREM [Suspect]
     Active Substance: SODIUM OXYBATE
     Indication: NARCOLEPSY
     Dosage: 2.25 G, BID
     Route: 048
     Dates: start: 201211
  5. ZANAFLEX [Concomitant]
     Active Substance: TIZANIDINE HYDROCHLORIDE
  6. VIAGRA [Concomitant]
     Active Substance: SILDENAFIL CITRATE
  7. GABITRIL [Concomitant]
     Active Substance: TIAGABINE HYDROCHLORIDE
  8. MAG [Concomitant]
  9. KLONOPIN [Suspect]
     Active Substance: CLONAZEPAM
     Indication: PRODUCT USED FOR UNKNOWN INDICATION
  10. STAVZOR [Concomitant]
     Active Substance: VALPROIC ACID
  11. DOXEPIN [Concomitant]
     Active Substance: DOXEPIN
  12. STRATTERA [Concomitant]
     Active Substance: ATOMOXETINE HYDROCHLORIDE
  13. VALIUM [Concomitant]
     Active Substance: DIAZEPAM
  14. LIBRIUM [Concomitant]
     Active Substance: CHLORDIAZEPOXIDE HYDROCHLORIDE
  15. NORCO [Concomitant]
     Active Substance: ACETAMINOPHEN\HYDROCODONE BITARTRATE
  16. TRILEPTAL [Concomitant]
     Active Substance: OXCARBAZEPINE
  17. BACLOFEN. [Suspect]
     Active Substance: BACLOFEN
     Indication: PRODUCT USED FOR UNKNOWN INDICATION
  18. ATIVAN [Suspect]
     Active Substance: LORAZEPAM
     Indication: PRODUCT USED FOR UNKNOWN INDICATION
  19. VALERIAN [Concomitant]
     Active Substance: VALERIAN
  20. NEURONTIN [Concomitant]
     Active Substance: GABAPENTIN
  21. FLUMAZENIL. [Concomitant]
     Active Substance: FLUMAZENIL
  22. ARSENICUM ALBUM [Concomitant]
  23. PICAMILON [Concomitant]
  24. SEROQUEL [Concomitant]
     Active Substance: QUETIAPINE FUMARATE
  25. PHENOBARBITAL. [Concomitant]
     Active Substance: PHENOBARBITAL
  26. MELATONIN [Concomitant]
     Active Substance: MELATONIN
  27. VISTARIL [Concomitant]
     Active Substance: HYDROXYZINE PAMOATE
  28. DEPAKOTE [Concomitant]
     Active Substance: DIVALPROEX SODIUM
  29. TYROSINE [Concomitant]
     Active Substance: TYROSINE
  30. HYDROCODONE [Suspect]
     Active Substance: HYDROCODONE
     Indication: PRODUCT USED FOR UNKNOWN INDICATION
  31. KETOROLAC [Concomitant]
     Active Substance: KETOROLAC\KETOROLAC TROMETHAMINE
  32. PROPRANOLOL [Concomitant]
     Active Substance: PROPRANOLOL HYDROCHLORIDE
  33. GLUTAMINE [Concomitant]
     Active Substance: GLUTAMINE

REACTIONS (3)
  - Substance abuse [Unknown]
  - Expired product administered [Unknown]
  - Intentional product misuse [Unknown]
